FAERS Safety Report 9693622 (Version 2)
Quarter: 2013Q4

REPORT INFORMATION
  Report Type: Spontaneous
  Country: GB (occurrence: GB)
  Receive Date: 20131118
  Receipt Date: 20131120
  Transmission Date: 20140711
  Serious: Yes (Life-Threatening, Hospitalization)
  Sender: FDA-Public Use
  Company Number: GB-TEVA-443176ISR

PATIENT
  Age: 43 Year
  Sex: Female

DRUGS (1)
  1. QUETIAPINE [Suspect]
     Indication: SCHIZOAFFECTIVE DISORDER
     Route: 065

REACTIONS (3)
  - Peripartum cardiomyopathy [Unknown]
  - Cardiac arrest [Recovered/Resolved]
  - Live birth [Recovered/Resolved]
